FAERS Safety Report 21748406 (Version 4)
Quarter: 2023Q1

REPORT INFORMATION
  Report Type: Spontaneous
  Country: US (occurrence: US)
  Receive Date: 20221219
  Receipt Date: 20230316
  Transmission Date: 20230418
  Serious: No
  Sender: FDA-Public Use
  Company Number: US-PFIZER INC-2021650110

PATIENT
  Age: 65 Year
  Sex: Female
  Weight: 97.506 kg

DRUGS (4)
  1. IBRANCE [Suspect]
     Active Substance: PALBOCICLIB
     Indication: Breast cancer female
     Dosage: 14 DAYS ON AND 14 DAYS OFF
     Route: 048
  2. IBRANCE [Suspect]
     Active Substance: PALBOCICLIB
     Dosage: 100 MG, DAILY
     Dates: start: 201907, end: 20220922
  3. FULVESTRANT [Concomitant]
     Active Substance: FULVESTRANT
     Dosage: 25 MG
     Dates: start: 201907, end: 20220922
  4. DENOSUMAB [Concomitant]
     Active Substance: DENOSUMAB
     Dosage: 1 MG
     Dates: start: 201907, end: 20220922

REACTIONS (3)
  - Neoplasm progression [Unknown]
  - Fatigue [Unknown]
  - Off label use [Unknown]

NARRATIVE: CASE EVENT DATE: 20190701
